FAERS Safety Report 4305488-2 (Version None)
Quarter: 2004Q1

REPORT INFORMATION
  Report Type: 
  Country: None (occurrence: None)
  Receive Date: 20040226
  Receipt Date: 20031017
  Transmission Date: 20041129
  Serious: No
  Sender: FDA-Public Use
  Company Number: US-BRISTOL-MYERS SQUIBB COMPANY-12414645

PATIENT
  Age: 13 Year
  Sex: Male

DRUGS (4)
  1. ABILIFY [Suspect]
     Indication: BIPOLAR DISORDER
     Route: 048
     Dates: start: 20030808, end: 20031120
  2. CEPHALOSPORIN [Suspect]
     Indication: EAR INFECTION
     Dates: start: 20030924, end: 20030926
  3. LAMICTAL [Concomitant]
     Dates: start: 19960701
  4. MIRALAX [Concomitant]
     Dates: start: 20030618

REACTIONS (5)
  - DRUG HYPERSENSITIVITY [None]
  - EAR INFECTION [None]
  - FEELING HOT [None]
  - HYPERSENSITIVITY [None]
  - URTICARIA [None]
